FAERS Safety Report 23621306 (Version 2)
Quarter: 2024Q1

REPORT INFORMATION
  Report Type: Report from Study
  Country: US (occurrence: US)
  Receive Date: 20240312
  Receipt Date: 20240318
  Transmission Date: 20240410
  Serious: Yes (Other)
  Sender: FDA-Public Use
  Company Number: RO-JNJFOC-20240311277

PATIENT

DRUGS (1)
  1. IMBRUVICA [Suspect]
     Active Substance: IBRUTINIB
     Indication: Waldenstrom^s macroglobulinaemia
     Route: 048

REACTIONS (11)
  - Disease progression [Unknown]
  - Hypertension [Unknown]
  - Infection [Unknown]
  - Second primary malignancy [Unknown]
  - Haemorrhage [Unknown]
  - Anaemia [Unknown]
  - Atrial flutter [Unknown]
  - Neutropenia [Unknown]
  - Thrombocytopenia [Unknown]
  - Atrial fibrillation [Unknown]
  - Diarrhoea [Unknown]
